FAERS Safety Report 8395779-0 (Version None)
Quarter: 2012Q2

REPORT INFORMATION
  Report Type: 
  Country: None (occurrence: None)
  Receive Date: 20120525
  Receipt Date: 20120525
  Transmission Date: 20120825
  Serious: No
  Sender: FDA-Public Use
  Company Number: None

PATIENT
  Sex: Female

DRUGS (1)
  1. PROCINE THYROID [Suspect]
     Dosage: 30MG

REACTIONS (5)
  - DRY MOUTH [None]
  - DECREASED APPETITE [None]
  - ASTHENIA [None]
  - SOMNOLENCE [None]
  - ALOPECIA [None]
